FAERS Safety Report 6837764-3 (Version None)
Quarter: 2010Q3

REPORT INFORMATION
  Report Type: 
  Country: None (occurrence: None)
  Receive Date: 20100713
  Receipt Date: 20070521
  Transmission Date: 20110219
  Serious: No
  Sender: FDA-Public Use
  Company Number: US-PFIZER INC-2007041544

PATIENT
  Sex: Female
  Weight: 95.5 kg

DRUGS (18)
  1. CHANTIX [Suspect]
     Indication: SMOKING CESSATION THERAPY
     Route: 048
     Dates: start: 20070508
  2. LUMIGAN [Concomitant]
     Route: 047
  3. AZOPT [Concomitant]
     Route: 047
  4. ACTOS [Concomitant]
  5. METFORMIN [Concomitant]
  6. PROPRANOLOL [Concomitant]
  7. VALSARTAN [Concomitant]
  8. LEVOTHYROXINE [Concomitant]
  9. ABILIFY [Concomitant]
  10. DEPAKOTE [Concomitant]
  11. HYDROXYZINE PAMOATE [Concomitant]
  12. LITHIUM CARBONATE [Concomitant]
  13. ACETYLSALICYLIC ACID [Concomitant]
  14. ADVAIR DISKUS 100/50 [Concomitant]
     Route: 055
  15. SPIRIVA [Concomitant]
  16. NASONEX [Concomitant]
  17. ALBUTEROL [Concomitant]
  18. VYTORIN [Concomitant]

REACTIONS (1)
  - NAUSEA [None]
